FAERS Safety Report 4687516-8 (Version None)
Quarter: 2005Q2

REPORT INFORMATION
  Report Type: 
  Country: None (occurrence: None)
  Receive Date: 20050608
  Receipt Date: 20050608
  Transmission Date: 20051028
  Serious: Yes (Hospitalization)
  Sender: FDA-Public Use
  Company Number: None

PATIENT
  Age: 59 Year
  Sex: Female
  Weight: 82.6 kg

DRUGS (10)
  1. TAXOTERE [Suspect]
     Indication: BREAST CANCER STAGE IV
     Dosage: 60 MG     WEEKLY    INTRAVENOU
     Route: 042
     Dates: start: 20050415, end: 20050527
  2. REFLUDAN [Suspect]
     Dosage: 0.48 ML     Q12HOURS   SUBCUTANEO
     Route: 058
     Dates: start: 20050416, end: 20050601
  3. ATENOLOL [Concomitant]
  4. LOTENSIN [Concomitant]
  5. GLUCOVANCE [Concomitant]
  6. ASPIRIN [Concomitant]
  7. FLEXERIL [Concomitant]
  8. OXYCONTIN [Concomitant]
  9. OXYCODONE HCL [Concomitant]
  10. ROBITUSSIN DM [Concomitant]

REACTIONS (5)
  - COUGH [None]
  - DYSPNOEA [None]
  - METASTASIS [None]
  - PLEURAL EFFUSION [None]
  - PLEURODESIS [None]
